FAERS Safety Report 14731345 (Version 1)
Quarter: 2018Q2

REPORT INFORMATION
  Report Type: Spontaneous
  Country: IN (occurrence: IN)
  Receive Date: 20180407
  Receipt Date: 20180407
  Transmission Date: 20180711
  Serious: Yes (Death, Hospitalization)
  Sender: FDA-Public Use
  Company Number: IN-BION-007070

PATIENT
  Age: 65 Year
  Sex: Male

DRUGS (2)
  1. LIDOCAINE HYDROCHLORIDE. [Suspect]
     Active Substance: LIDOCAINE HYDROCHLORIDE
     Indication: LOCAL ANAESTHESIA
     Dosage: STRENGTH: 2%? 5 ML 2% LIDOCAINE GEL (100 MG) INTRANASALLY
  2. LIDOCAINE. [Suspect]
     Active Substance: LIDOCAINE
     Indication: LOCAL ANAESTHESIA
     Dosage: 5 SPRAYS OF 10% LIDOCAINE?TO OROPHARYNX (50 MG)

REACTIONS (4)
  - Respiratory failure [Unknown]
  - Pneumonia [Fatal]
  - Septic shock [Fatal]
  - Ventricular tachycardia [Recovered/Resolved]
